FAERS Safety Report 6758794-6 (Version None)
Quarter: 2010Q2

REPORT INFORMATION
  Report Type: 
  Country: None (occurrence: None)
  Receive Date: 20100607
  Receipt Date: 20100601
  Transmission Date: 20101027
  Serious: Yes (Other)
  Sender: FDA-Public Use
  Company Number: US-RB-010543-10

PATIENT
  Sex: Male

DRUGS (2)
  1. SUBOXONE [Suspect]
     Route: 060
     Dates: start: 20100522
  2. ALCOHOL [Suspect]
     Indication: ALCOHOL ABUSE
     Dosage: AMOUNT CONSUMED UNKNOWN
     Route: 048
     Dates: end: 20100525

REACTIONS (1)
  - CONVULSION [None]
